FAERS Safety Report 8578317-9 (Version None)
Quarter: 2012Q3

REPORT INFORMATION
  Report Type: 
  Country: None (occurrence: None)
  Receive Date: 20120808
  Receipt Date: 20120727
  Transmission Date: 20120928
  Serious: Yes (Hospitalization, Other)
  Sender: FDA-Public Use
  Company Number: CO-JNJFOC-20120701349

PATIENT
  Age: 32 Year
  Sex: Female

DRUGS (6)
  1. HALOPERIDOL [Suspect]
     Route: 048
  2. LEVOMEFOLATE CALCIUM [Suspect]
     Indication: PSYCHOTIC DISORDER
     Route: 048
  3. HALOPERIDOL [Suspect]
     Route: 048
  4. HALOPERIDOL [Suspect]
     Route: 048
  5. LORAZEPAM [Suspect]
     Indication: PSYCHOTIC DISORDER
     Route: 048
  6. HALOPERIDOL [Suspect]
     Indication: PSYCHOTIC DISORDER
     Route: 048

REACTIONS (4)
  - CHOLESTASIS [None]
  - TACHYCARDIA [None]
  - JAUNDICE [None]
  - PSYCHOTIC DISORDER [None]
